FAERS Safety Report 5874967-9 (Version None)
Quarter: 2008Q3

REPORT INFORMATION
  Report Type: 
  Country: None (occurrence: None)
  Receive Date: 20080908
  Receipt Date: 20080908
  Transmission Date: 20090109
  Serious: Yes (Death)
  Sender: FDA-Public Use
  Company Number: None

PATIENT
  Age: 53 Year
  Sex: Male
  Weight: 45.3597 kg

DRUGS (1)
  1. BCNU BRISTOL MYERS SQUIBB [Suspect]
     Indication: GLIOBLASTOMA MULTIFORME
     Dosage: 6 WKS. IV
     Route: 042
     Dates: start: 20040901, end: 20071001

REACTIONS (4)
  - DYSPNOEA [None]
  - ECONOMIC PROBLEM [None]
  - PULMONARY FIBROSIS [None]
  - SPEECH DISORDER [None]
